FAERS Safety Report 6452781-3 (Version None)
Quarter: 2009Q4

REPORT INFORMATION
  Report Type: 
  Country: None (occurrence: None)
  Receive Date: 20091124
  Receipt Date: 20091123
  Transmission Date: 20100525
  Serious: Yes (Other)
  Sender: FDA-Public Use
  Company Number: US-PFIZER INC-2009258091

PATIENT
  Age: 58 Year
  Sex: Female
  Weight: 72.562 kg

DRUGS (1)
  1. GLUCOTROL XL [Suspect]
     Indication: HYPERGLYCAEMIA
     Dosage: 10 MG, 3X/DAY
     Route: 048

REACTIONS (6)
  - BLOOD GLUCOSE INCREASED [None]
  - DIARRHOEA [None]
  - DIZZINESS [None]
  - DRUG INEFFECTIVE [None]
  - FLATULENCE [None]
  - LOSS OF CONSCIOUSNESS [None]
